FAERS Safety Report 16480095 (Version 6)
Quarter: 2022Q1

REPORT INFORMATION
  Report Type: Report from Study
  Country: JP (occurrence: JP)
  Receive Date: 20190626
  Receipt Date: 20220224
  Transmission Date: 20220423
  Serious: Yes (Disabling, Other)
  Sender: FDA-Public Use
  Company Number: JP-GILEAD-2019-0415201

PATIENT
  Age: 67 Year
  Sex: Male

DRUGS (6)
  1. ADEFOVIR DIPIVOXIL [Suspect]
     Active Substance: ADEFOVIR DIPIVOXIL
     Indication: Chronic hepatitis B
     Dosage: 10 MG, QOD
     Route: 048
     Dates: start: 20070701, end: 20130605
  2. ADEFOVIR DIPIVOXIL [Suspect]
     Active Substance: ADEFOVIR DIPIVOXIL
     Dosage: 10 MG, Q3DAYS
     Route: 048
     Dates: start: 20130605, end: 20160316
  3. ZEFIX [Suspect]
     Active Substance: LAMIVUDINE
     Indication: Chronic hepatitis B
     Dosage: UNK
     Route: 048
  4. LAMIVUDINE [Suspect]
     Active Substance: LAMIVUDINE
     Indication: Chronic hepatitis B
     Dosage: 100 MG, QD
     Route: 048
     Dates: start: 20040618, end: 20170621
  5. VEMLIDY [Concomitant]
     Active Substance: TENOFOVIR ALAFENAMIDE FUMARATE
     Indication: Chronic hepatitis B
     Dosage: UNK
     Dates: start: 201807
  6. INTERFERON BETA [Concomitant]
     Active Substance: INTERFERON BETA
     Indication: Beta interferon therapy
     Dosage: 0.9 UNK

REACTIONS (4)
  - Fanconi syndrome [Recovering/Resolving]
  - Hepatitis B [Recovered/Resolved]
  - Chronic kidney disease [Not Recovered/Not Resolved]
  - Renal impairment [Not Recovered/Not Resolved]

NARRATIVE: CASE EVENT DATE: 20070628
